FAERS Safety Report 7428945-9 (Version None)
Quarter: 2011Q2

REPORT INFORMATION
  Report Type: 
  Country: None (occurrence: None)
  Receive Date: 20110415
  Receipt Date: 20110415
  Transmission Date: 20111010
  Serious: No
  Sender: FDA-Public Use
  Company Number: None

PATIENT
  Sex: Male
  Weight: 53.0709 kg

DRUGS (1)
  1. CLAVARIS 40MG BARR LABORATORIES [Suspect]
     Indication: ACNE CYSTIC
     Dosage: 40MG BID PO
     Route: 048
     Dates: start: 20110101, end: 20110414

REACTIONS (3)
  - EPISTAXIS [None]
  - URTICARIA [None]
  - PRURITUS [None]
